FAERS Safety Report 4870186-3 (Version None)
Quarter: 2005Q4

REPORT INFORMATION
  Report Type: 
  Country: None (occurrence: None)
  Receive Date: 20051228
  Receipt Date: 20051220
  Transmission Date: 20060501
  Serious: Yes (Hospitalization)
  Sender: FDA-Public Use
  Company Number: 2005BI016093

PATIENT
  Age: 66 Year
  Sex: Female

DRUGS (7)
  1. AVONEX [Suspect]
     Indication: MULTIPLE SCLEROSIS
     Dosage: 30 UG; QW; IM
     Route: 030
     Dates: start: 19980601, end: 20010401
  2. ATENOLOL [Concomitant]
  3. DITROPAN XL [Concomitant]
  4. PRILOSEC [Concomitant]
  5. ZESTRIL [Concomitant]
  6. ZOLOFT [Concomitant]
  7. KRISTALOSE [Concomitant]

REACTIONS (4)
  - ASTHENIA [None]
  - CEREBROVASCULAR ACCIDENT [None]
  - HEART VALVE INSUFFICIENCY [None]
  - HEMIPARESIS [None]
